FAERS Safety Report 15401706 (Version 4)
Quarter: 2020Q2

REPORT INFORMATION
  Report Type: Spontaneous
  Country: US (occurrence: US)
  Receive Date: 20180919
  Receipt Date: 20200507
  Transmission Date: 20200713
  Serious: Yes (Other)
  Sender: FDA-Public Use
  Company Number: US-PFIZER INC-2018374548

PATIENT
  Age: 47 Year
  Sex: Female

DRUGS (4)
  1. PREMARIN [Suspect]
     Active Substance: ESTROGENS, CONJUGATED
     Dosage: UNK, WEEKLY (ONCE A WEEK IN THE BEGINNING)
  2. PREMARIN [Suspect]
     Active Substance: ESTROGENS, CONJUGATED
     Indication: MENOPAUSE
     Dosage: UNK
     Route: 067
  3. PREMARIN [Suspect]
     Active Substance: ESTROGENS, CONJUGATED
     Indication: HYSTERECTOMY
     Dosage: UNK UNK, 2X/WEEK
     Route: 067
  4. PREMARIN [Suspect]
     Active Substance: ESTROGENS, CONJUGATED
     Dosage: UNK (3 TIMES A WEEK)

REACTIONS (7)
  - Vulvovaginal discomfort [Unknown]
  - Diabetes mellitus [Unknown]
  - Stress [Unknown]
  - Intentional product misuse [Unknown]
  - Urinary tract infection [Unknown]
  - Urinary tract infection fungal [Unknown]
  - Dysuria [Unknown]
